FAERS Safety Report 4707842-3 (Version None)
Quarter: 2005Q3

REPORT INFORMATION
  Report Type: 
  Country: None (occurrence: None)
  Receive Date: 20050705
  Receipt Date: 20050705
  Transmission Date: 20060218
  Serious: No
  Sender: FDA-Public Use
  Company Number: None

PATIENT
  Sex: Male
  Weight: 99.3377 kg

DRUGS (2)
  1. ZETIA [Suspect]
     Indication: HYPERCHOLESTEROLAEMIA
     Dosage: 1    QD   ORAL
     Route: 048
     Dates: start: 20050619, end: 20050621
  2. MEVACOR [Concomitant]

REACTIONS (2)
  - ABDOMINAL PAIN [None]
  - PANCREATITIS [None]
